FAERS Safety Report 9520096 (Version 2)
Quarter: 2013Q4

REPORT INFORMATION
  Report Type: Report from Study
  Country: US (occurrence: US)
  Receive Date: 20130912
  Receipt Date: 20131115
  Transmission Date: 20140711
  Serious: Yes (Hospitalization)
  Sender: FDA-Public Use
  Company Number: PHEH2013US019110

PATIENT
  Age: 66 Year
  Sex: Female

DRUGS (2)
  1. GLEEVEC [Suspect]
     Indication: CERVIX CARCINOMA
     Dosage: 600 MG, QD
     Route: 048
     Dates: start: 20130417
  2. GLEEVEC [Suspect]
     Indication: ACUTE LYMPHOCYTIC LEUKAEMIA

REACTIONS (5)
  - Nephrolithiasis [Unknown]
  - Clostridium difficile colitis [Unknown]
  - Acute lymphocytic leukaemia [Unknown]
  - Diarrhoea [Unknown]
  - Vomiting [Unknown]
